FAERS Safety Report 11239391 (Version 1)
Quarter: 2015Q3

REPORT INFORMATION
  Report Type: Spontaneous
  Country: US (occurrence: None)
  Receive Date: 20150701
  Receipt Date: 20150701
  Transmission Date: 20151125
  Serious: Yes (Other)
  Sender: FDA-Public Use
  Company Number: None

PATIENT
  Age: 30 Year
  Sex: Female
  Weight: 60.33 kg

DRUGS (5)
  1. ZOLPIDEM TARTRATE. [Suspect]
     Active Substance: ZOLPIDEM TARTRATE
     Indication: SLEEP DISORDER
     Dosage: 1 PILL, AS NEEDED, TAKEN BY MOUTH
     Route: 048
     Dates: start: 20140430, end: 20150517
  2. MULTI VITAMIN [Concomitant]
     Active Substance: VITAMINS
  3. LAMICTAL [Concomitant]
     Active Substance: LAMOTRIGINE
  4. UVA URSI [Concomitant]
  5. VITAMIN D [Concomitant]
     Active Substance: CHOLECALCIFEROL

REACTIONS (1)
  - Abnormal behaviour [None]

NARRATIVE: CASE EVENT DATE: 20150510
